FAERS Safety Report 8973649 (Version 3)
Quarter: 2013Q1

REPORT INFORMATION
  Report Type: Spontaneous
  Country: JP (occurrence: JP)
  Receive Date: 20121219
  Receipt Date: 20130311
  Transmission Date: 20140127
  Serious: Yes (Hospitalization, Other)
  Sender: FDA-Public Use
  Company Number: JP-JNJFOC-20121104266

PATIENT
  Age: 80 Year
  Sex: Female
  Weight: 56 kg

DRUGS (9)
  1. REMINYL [Suspect]
     Indication: DEMENTIA ALZHEIMER^S TYPE
     Route: 048
     Dates: start: 20120630, end: 20120714
  2. BAYASPIRIN [Concomitant]
     Indication: CEREBRAL INFARCTION
     Route: 048
     Dates: start: 20120616
  3. PREMINENT [Concomitant]
     Indication: CEREBRAL INFARCTION
     Route: 048
     Dates: start: 20120616
  4. JANUVIA [Concomitant]
     Indication: DIABETES MELLITUS
     Route: 048
     Dates: start: 20120616
  5. LANSOPRAZOLE [Concomitant]
     Dosage: PERORAL
     Route: 048
     Dates: start: 20120616
  6. JZOLOFT [Concomitant]
     Indication: HALLUCINATION
     Route: 048
     Dates: start: 20120616
  7. MUCOSTA [Concomitant]
     Indication: GASTRITIS PROPHYLAXIS
     Route: 048
     Dates: start: 20120616
  8. LAXOBERON [Concomitant]
     Indication: CONSTIPATION
     Route: 048
     Dates: start: 20120616
  9. HYPEN [Concomitant]
     Indication: BACK PAIN
     Route: 048
     Dates: start: 20120616

REACTIONS (8)
  - Delusion [Recovered/Resolved]
  - Cerebral infarction [Recovered/Resolved]
  - Altered state of consciousness [Recovered/Resolved]
  - Poriomania [Recovering/Resolving]
  - Malaise [Recovered/Resolved]
  - Back pain [Recovered/Resolved]
  - Aggression [Recovering/Resolving]
  - Aggression [Recovering/Resolving]
